FAERS Safety Report 24682626 (Version 1)
Quarter: 2024Q4

REPORT INFORMATION
  Report Type: Other
  Country: AU (occurrence: AU)
  Receive Date: 20241130
  Receipt Date: 20241130
  Transmission Date: 20250115
  Serious: Yes (Hospitalization, Other)
  Sender: DEXCEL
  Company Number: AU-DEXPHARM-2024-4521

PATIENT
  Age: 71 Year
  Sex: Male

DRUGS (6)
  1. SOTALOL [Suspect]
     Active Substance: SOTALOL
     Indication: Atrial fibrillation
     Dosage: 160MG/D. DOSE REDUCTION FROM 80 TO 40MG TWICE DAILY
  2. SOTALOL [Suspect]
     Active Substance: SOTALOL
     Indication: Atrial fibrillation
  3. PANTOPRAZOLE [Suspect]
     Active Substance: PANTOPRAZOLE
  4. WARFARIN [Suspect]
     Active Substance: WARFARIN
  5. PERINDOPRIL [Suspect]
     Active Substance: PERINDOPRIL
  6. FUROSEMIDE [Suspect]
     Active Substance: FUROSEMIDE

REACTIONS (1)
  - Electrocardiogram QT prolonged [Unknown]
